FAERS Safety Report 9579945 (Version 1)
Quarter: 2013Q4

REPORT INFORMATION
  Report Type: Report from Study
  Country: US (occurrence: US)
  Receive Date: 20131002
  Receipt Date: 20131002
  Transmission Date: 20140711
  Serious: Yes (Other)
  Sender: FDA-Public Use
  Company Number: US-ALEXION PHARMACEUTICALS INC.-A201302324

PATIENT
  Sex: Male

DRUGS (1)
  1. SOLIRIS [Suspect]
     Indication: HAEMOLYTIC URAEMIC SYNDROME
     Dosage: UNK
     Route: 042

REACTIONS (6)
  - Plasmapheresis [Unknown]
  - Cardiomyopathy [Unknown]
  - Parvovirus infection [Unknown]
  - Bone marrow failure [Unknown]
  - Blood creatinine increased [Unknown]
  - Platelet count decreased [Unknown]
